FAERS Safety Report 5590569-6 (Version None)
Quarter: 2008Q1

REPORT INFORMATION
  Report Type: 
  Country: None (occurrence: None)
  Receive Date: 20080114
  Receipt Date: 20071228
  Transmission Date: 20080703
  Serious: Yes (Hospitalization, Other)
  Sender: FDA-Public Use
  Company Number: US-BAYER-200714293BCC

PATIENT
  Age: 80 Year
  Sex: Female
  Weight: 53 kg

DRUGS (7)
  1. ASPIRIN [Suspect]
     Indication: ANTICOAGULANT THERAPY
     Route: 048
     Dates: start: 20070312, end: 20070317
  2. BLINDED EPTIFIBATIDE [Suspect]
     Indication: ACUTE CORONARY SYNDROME
     Route: 042
     Dates: start: 20070312, end: 20070312
  3. BLINDED EPTIFIBATIDE [Suspect]
     Route: 042
     Dates: start: 20070312, end: 20070312
  4. BLINDED EPTIFIBATIDE [Suspect]
     Route: 042
     Dates: start: 20070312, end: 20070313
  5. ZOCOR [Concomitant]
     Indication: DRUG USE FOR UNKNOWN INDICATION
     Route: 065
     Dates: start: 20070314
  6. NEXIUM [Concomitant]
     Indication: DRUG USE FOR UNKNOWN INDICATION
     Route: 065
     Dates: start: 20070315
  7. LOPRESSOR [Concomitant]
     Indication: DRUG USE FOR UNKNOWN INDICATION
     Dates: start: 20070318

REACTIONS (10)
  - ASTHENIA [None]
  - BODY TEMPERATURE INCREASED [None]
  - CHEST DISCOMFORT [None]
  - COUGH [None]
  - GROIN PAIN [None]
  - HAEMATOMA [None]
  - MALAISE [None]
  - PNEUMONIA [None]
  - PYREXIA [None]
  - VASCULAR PSEUDOANEURYSM [None]
